FAERS Safety Report 19805385 (Version 3)
Quarter: 2021Q4

REPORT INFORMATION
  Report Type: Report from Study
  Country: FR (occurrence: FR)
  Receive Date: 20210908
  Receipt Date: 20211007
  Transmission Date: 20220303
  Serious: Yes (Other)
  Sender: FDA-Public Use
  Company Number: FR-ROCHE-2902467

PATIENT
  Age: 69 Year
  Sex: Female
  Weight: 96 kg

DRUGS (5)
  1. ATEZOLIZUMAB [Suspect]
     Active Substance: ATEZOLIZUMAB
     Indication: Bladder cancer
     Dosage: DATE OF LAST ADMINISTRATION BEFORE SAE 05/AUG/2021 CYCLE 1 AT 1200 MG
     Route: 041
     Dates: start: 20210805, end: 20210826
  2. BCG VACCINE [Suspect]
     Active Substance: BCG VACCINE
     Indication: Bladder cancer
     Dosage: DATE OF LAST ADMINISTRATION BEFORE EVENT ON 12/AUG/2021 AT 50 ML
     Route: 065
     Dates: start: 20210805
  3. IRBESARTAN [Concomitant]
     Active Substance: IRBESARTAN
     Route: 048
  4. ATORVASTATIN [Concomitant]
     Active Substance: ATORVASTATIN
     Indication: Dyslipidaemia
     Route: 048
  5. PANTOPRAZOLE [Concomitant]
     Active Substance: PANTOPRAZOLE
     Indication: Gastrooesophageal reflux disease
     Route: 048

REACTIONS (4)
  - Lymphadenopathy [Not Recovered/Not Resolved]
  - Immune system disorder [Recovered/Resolved]
  - Lymphadenitis [Recovered/Resolved]
  - Lymph node pain [Not Recovered/Not Resolved]

NARRATIVE: CASE EVENT DATE: 20210823
